FAERS Safety Report 4924788-6 (Version None)
Quarter: 2006Q1

REPORT INFORMATION
  Report Type: 
  Country: None (occurrence: None)
  Receive Date: 20060222
  Receipt Date: 20060208
  Transmission Date: 20060701
  Serious: Yes (Death, Hospitalization, Other)
  Sender: FDA-Public Use
  Company Number: 2006BH002794

PATIENT

DRUGS (3)
  1. CARBOPLATIN GENERIC [Suspect]
     Indication: LUNG NEOPLASM MALIGNANT
  2. VINORELBINE [Suspect]
     Indication: LUNG NEOPLASM MALIGNANT
     Dosage: 25 MG/M2;
  3. TAXOTERE [Suspect]
     Indication: LUNG NEOPLASM MALIGNANT
     Dosage: 75 MG/M2;

REACTIONS (5)
  - CHEST PAIN [None]
  - DYSPNOEA [None]
  - MUCOSAL INFLAMMATION [None]
  - OESOPHAGEAL DISORDER [None]
  - PULMONARY EMBOLISM [None]
